FAERS Safety Report 7904523-X (Version None)
Quarter: 2011Q4

REPORT INFORMATION
  Report Type: 
  Country: None (occurrence: None)
  Receive Date: 20111109
  Receipt Date: 20111103
  Transmission Date: 20120403
  Serious: Yes (Hospitalization, Other)
  Sender: FDA-Public Use
  Company Number: DE-PFIZER INC-2011205388

PATIENT
  Age: 58 Year
  Sex: Male
  Weight: 100 kg

DRUGS (23)
  1. ENOXAPARIN SODIUM [Concomitant]
     Dosage: 40 MG, 1X/DAY
  2. TEPILTA [Concomitant]
     Dosage: UNK, 4X/DAY
  3. TORASEMIDE [Concomitant]
     Dosage: 5 MG, 3X/DAY
  4. ACETYLCYSTEINE [Concomitant]
     Dosage: 1 DF, 1X/DAY
  5. DEXAMETHASONE [Concomitant]
     Dosage: 4 MG, 2X/DAY
  6. SIMVASTATIN [Concomitant]
     Dosage: UNK, 1X/DAY
  7. AMPHOTERICIN B [Concomitant]
     Dosage: UNK, 4X/DAY
  8. LAXOBERAL [Concomitant]
     Dosage: UNK, 1X/DAY
  9. SALBUTAMOL [Concomitant]
     Dosage: 0.1 MG, 2X/DAY
  10. SPIRIVA [Concomitant]
     Dosage: UNK, 1X/DAY
  11. ATMADISC [Concomitant]
     Dosage: UNK, 2X/DAY
  12. PALLADONE [Concomitant]
     Dosage: 4 MG, 1X/DAY
  13. RAMIPRIL [Concomitant]
     Dosage: 2.5 MG, 2X/DAY
  14. LYRICA [Suspect]
     Indication: NEURALGIA
     Dosage: 150 MG, 2X/DAY
     Dates: start: 20110801, end: 20110825
  15. MORPHINE [Concomitant]
     Dosage: UNK, 5X/DAY
  16. ASPIRIN [Concomitant]
     Dosage: 100 MG, 1X/DAY
  17. MACROGOL [Concomitant]
     Dosage: UNK, 2X/DAY
  18. PANTOPRAZOLE [Concomitant]
     Dosage: 20 MG, 1X/DAY
  19. PALLADONE [Concomitant]
     Dosage: 24 MG, 1X/DAY
  20. DICLOFENAC SODIUM [Concomitant]
     Dosage: UNK, 3X/DAY
  21. FORTICARE [Concomitant]
     Dosage: 125 ML, 3X/DAY
  22. NOVALGIN [Concomitant]
     Dosage: 40 GTT, 4X/DAY
  23. TAPENTADOL [Concomitant]
     Dosage: 150 MG, 2X/DAY

REACTIONS (10)
  - SKIN ULCER [None]
  - ERYTHEMA [None]
  - BLISTER [None]
  - OEDEMA PERIPHERAL [None]
  - HYPERHIDROSIS [None]
  - TACHYPNOEA [None]
  - DYSPNOEA [None]
  - CONFUSIONAL STATE [None]
  - GENERAL PHYSICAL HEALTH DETERIORATION [None]
  - OBESITY [None]
